FAERS Safety Report 8743489 (Version 2)
Quarter: 2012Q4

REPORT INFORMATION
  Report Type: Report from Study
  Country: TH (occurrence: TH)
  Receive Date: 20120824
  Receipt Date: 20120829
  Transmission Date: 20130627
  Serious: Yes (Death, Hospitalization, Other)
  Sender: FDA-Public Use
  Company Number: TH-ROCHE-1089768

PATIENT
  Age: 61 Year
  Sex: Female
  Weight: 57.4 kg

DRUGS (14)
  1. MABTHERA [Suspect]
     Indication: B-CELL LYMPHOMA
     Route: 042
     Dates: start: 20120302
  2. CYCLOPHOSPHAMIDE [Suspect]
     Indication: B-CELL LYMPHOMA
     Route: 042
     Dates: start: 20120302
  3. DOXORUBICIN [Suspect]
     Indication: B-CELL LYMPHOMA
     Route: 042
     Dates: start: 20120302
  4. VINCRISTINE [Suspect]
     Indication: B-CELL LYMPHOMA
     Dates: start: 20120302
  5. PREDNISONE [Suspect]
     Indication: B-CELL LYMPHOMA
     Route: 042
     Dates: start: 20120302
  6. ATENOLOL [Concomitant]
     Indication: HYPERTENSION
     Dates: start: 19981224
  7. SIMVASTATIN [Concomitant]
     Indication: DYSLIPIDAEMIA
     Dates: start: 20011016
  8. METFORMIN [Concomitant]
     Indication: DIABETES MELLITUS
     Dates: start: 20110709
  9. BENADRYL [Concomitant]
     Indication: PREMEDICATION
     Dates: start: 20120302
  10. DEXAMETHASONE [Concomitant]
     Indication: PREMEDICATION
     Dates: start: 20120302
  11. PARACETAMOL [Concomitant]
     Indication: PREMEDICATION
     Dates: start: 20120302
  12. ONDANSETRON [Concomitant]
     Indication: NAUSEA
     Dates: start: 20120302
  13. ONDANSETRON [Concomitant]
     Indication: VOMITING
  14. ONDANSETRON [Concomitant]
     Indication: PREMEDICATION

REACTIONS (5)
  - Pneumonia [Fatal]
  - Neutropenia [Unknown]
  - Neutropenia [Recovered/Resolved]
  - Cytomegalovirus infection [Fatal]
  - Hepatitis [Fatal]
